FAERS Safety Report 12020965 (Version 1)
Quarter: 2016Q1

REPORT INFORMATION
  Report Type: Report from Study
  Country: US (occurrence: US)
  Receive Date: 20160206
  Receipt Date: 20160206
  Transmission Date: 20160526
  Serious: No
  Sender: FDA-Public Use
  Company Number: US-ABBVIE-15K-163-1467775-00

PATIENT
  Age: 61 Year
  Sex: Female

DRUGS (1)
  1. HUMIRA [Suspect]
     Active Substance: ADALIMUMAB
     Indication: RHEUMATOID ARTHRITIS
     Dosage: INITIAL DOSE
     Route: 065
     Dates: start: 20150906

REACTIONS (9)
  - Balance disorder [Recovered/Resolved]
  - Abdominal pain upper [Recovered/Resolved]
  - Lethargy [Recovered/Resolved]
  - Injection site pain [Recovered/Resolved]
  - Drug effect decreased [Unknown]
  - Sinus disorder [Recovered/Resolved]
  - Hypoaesthesia [Recovered/Resolved]
  - Muscular weakness [Recovered/Resolved]
  - Headache [Recovered/Resolved]

NARRATIVE: CASE EVENT DATE: 201509
